FAERS Safety Report 9012050 (Version 1)
Quarter: 2012Q4

REPORT INFORMATION
  Report Type: Spontaneous
  Country: AT (occurrence: None)
  Receive Date: 20121228
  Receipt Date: 20121228
  Transmission Date: 20130627
  Serious: Yes (Other)
  Sender: FDA-Public Use
  Company Number: AU-20120081

PATIENT
  Sex: Female

DRUGS (2)
  1. LIPIODOL [Suspect]
     Indication: ENDOSCOPY
  2. CYANOACRYLATE GLUE (CYANOACRYLATE) [Suspect]
     Indication: ENDOSCOPY

REACTIONS (10)
  - Pulmonary embolism [None]
  - Pulmonary infarction [None]
  - Disseminated intravascular coagulation [None]
  - Off label use [None]
  - Pyrexia [None]
  - Hypoxia [None]
  - Hypotension [None]
  - Anaemia [None]
  - Abdominal wall haematoma [None]
  - Contusion [None]
